FAERS Safety Report 6779079-8 (Version None)
Quarter: 2010Q2

REPORT INFORMATION
  Report Type: 
  Country: None (occurrence: None)
  Receive Date: 20100618
  Receipt Date: 20100615
  Transmission Date: 20101027
  Serious: Yes (Death)
  Sender: FDA-Public Use
  Company Number: JP-ELI_LILLY_AND_COMPANY-JP201006004160

PATIENT
  Sex: Male

DRUGS (1)
  1. TADALAFIL [Suspect]
     Indication: PULMONARY HYPERTENSION
     Dosage: UNK, UNKNOWN
     Route: 048
     Dates: start: 20100517

REACTIONS (1)
  - DEATH [None]
